FAERS Safety Report 6866828-3 (Version None)
Quarter: 2010Q2

REPORT INFORMATION
  Report Type: 
  Country: None (occurrence: None)
  Receive Date: 20100528
  Receipt Date: 20100128
  Transmission Date: 20101027
  Serious: No
  Sender: FDA-Public Use
  Company Number: 005816

PATIENT

DRUGS (2)
  1. LACOSAMIDE [Suspect]
     Dosage: (400 MG)
  2. DEPAKOTE [Concomitant]

REACTIONS (1)
  - SOMNOLENCE [None]
